FAERS Safety Report 25705612 (Version 1)
Quarter: 2025Q3

REPORT INFORMATION
  Report Type: Spontaneous
  Country: US (occurrence: None)
  Receive Date: 20250819
  Receipt Date: 20250819
  Transmission Date: 20251021
  Serious: No
  Sender: FDA-CTU
  Company Number: None

PATIENT
  Age: 40 Year
  Sex: Female

DRUGS (9)
  1. TEZSPIRE [Suspect]
     Active Substance: TEZEPELUMAB-EKKO
     Indication: Asthma
  2. ASTELI N NASAL SPRAY 137MCG [Concomitant]
  3. DULERA [Concomitant]
     Active Substance: FORMOTEROL FUMARATE DIHYDRATE\MOMETASONE FUROATE
  4. MOMETASONE 50MCG NASAL SPRAY (120) [Concomitant]
  5. SPIRIVA RESPIMAT 1.25MCG IN 4GM 60D [Concomitant]
  6. ALBUTEROL HFA INH (200 PUFFS) 6.?GM [Concomitant]
  7. DUONEB INHALATION SOLUTION 3ML [Concomitant]
  8. TYLENOL 500MG X/S CAPLETS SO^S [Concomitant]
  9. FOLIC ACID 1 MG TABLETS [Concomitant]
     Indication: Asthma
     Route: 058
     Dates: start: 20250724

REACTIONS (1)
  - Swelling of eyelid [None]

NARRATIVE: CASE EVENT DATE: 20250727
